FAERS Safety Report 10071011 (Version 3)
Quarter: 2015Q1

REPORT INFORMATION
  Report Type: Report from Study
  Country: US (occurrence: US)
  Receive Date: 20140410
  Receipt Date: 20150311
  Transmission Date: 20150720
  Serious: Yes (Other)
  Sender: FDA-Public Use
  Company Number: US-PURDUE-USA-2014-0112747

PATIENT
  Sex: Female

DRUGS (2)
  1. OXYCONTIN [Suspect]
     Active Substance: OXYCODONE HYDROCHLORIDE
     Indication: BACK PAIN
     Dosage: 80 MG, Q8H
     Route: 048
  2. OXYCONTIN [Suspect]
     Active Substance: OXYCODONE HYDROCHLORIDE
     Indication: MYELOPATHY
     Dosage: 80 MG, Q12H
     Route: 048
     Dates: start: 201304

REACTIONS (3)
  - Cholelithiasis [Recovered/Resolved]
  - Gallbladder pain [Recovered/Resolved]
  - Inadequate analgesia [Unknown]
